FAERS Safety Report 20064457 (Version 3)
Quarter: 2021Q4

REPORT INFORMATION
  Report Type: Spontaneous
  Country: US (occurrence: US)
  Receive Date: 20211112
  Receipt Date: 20211217
  Transmission Date: 20220303
  Serious: Yes (Other)
  Sender: FDA-Public Use
  Company Number: US-009507513-2111USA002215

PATIENT
  Sex: Female

DRUGS (2)
  1. ZOSTAVAX [Suspect]
     Active Substance: VARICELLA-ZOSTER VIRUS STRAIN OKA/MERCK LIVE ANTIGEN
     Indication: Herpes zoster
     Route: 030
     Dates: start: 2009
  2. STERILE DILUENT (WATER) [Suspect]
     Active Substance: WATER
     Dosage: UNK
     Route: 030
     Dates: start: 2009

REACTIONS (9)
  - Exophthalmos [Unknown]
  - Immunosuppression [Unknown]
  - Herpes zoster [Recovered/Resolved]
  - Herpes zoster [Recovering/Resolving]
  - Dizziness [Unknown]
  - Vomiting [Unknown]
  - Eye pain [Not Recovered/Not Resolved]
  - Impaired driving ability [Unknown]
  - Incorrect route of product administration [Unknown]

NARRATIVE: CASE EVENT DATE: 20090101
